FAERS Safety Report 10530986 (Version 2)
Quarter: 2016Q4

REPORT INFORMATION
  Report Type: Spontaneous
  Country: GB (occurrence: GB)
  Receive Date: 20141021
  Receipt Date: 20161020
  Transmission Date: 20170206
  Serious: Yes (Death, Other)
  Sender: FDA-Public Use
  Company Number: GB-OTSUKA-EU-2014-10491

PATIENT
  Age: 66 Year
  Sex: Male

DRUGS (6)
  1. OPC-14597 [Suspect]
     Active Substance: CILOSTAZOL
     Indication: PRODUCT USED FOR UNKNOWN INDICATION
     Dosage: UNK
     Route: 065
  2. CITALOPRAM [Suspect]
     Active Substance: CITALOPRAM HYDROBROMIDE
     Dosage: 20 MG, UNK
     Route: 065
  3. ABILIFY MAINTENA [Suspect]
     Active Substance: ARIPIPRAZOLE
     Indication: PRODUCT USED FOR UNKNOWN INDICATION
     Dosage: UNK
     Route: 065
  4. ABILIFY [Suspect]
     Active Substance: ARIPIPRAZOLE
     Indication: PRODUCT USED FOR UNKNOWN INDICATION
     Dosage: UNK
     Route: 065
  5. CITALOPRAM [Suspect]
     Active Substance: CITALOPRAM HYDROBROMIDE
     Indication: PRODUCT USED FOR UNKNOWN INDICATION
     Dosage: 10 MG, UNK
     Route: 065
  6. RISPERDAL CONSTA [Suspect]
     Active Substance: RISPERIDONE
     Indication: SCHIZOPHRENIA
     Dosage: 50 MG MILLIGRAM(S), ONCE EVERY 2 WEEK
     Route: 030
     Dates: start: 2007

REACTIONS (6)
  - Anal incontinence [Fatal]
  - Ketoacidosis [Fatal]
  - Metabolic disorder [Fatal]
  - Dysstasia [Fatal]
  - Parkinsonism [Fatal]
  - Myocardial ischaemia [Fatal]

NARRATIVE: CASE EVENT DATE: 20140404
